FAERS Safety Report 24453644 (Version 2)
Quarter: 2024Q4

REPORT INFORMATION
  Report Type: Report from Study
  Country: US (occurrence: US)
  Receive Date: 20241017
  Receipt Date: 20241018
  Transmission Date: 20250115
  Serious: No
  Sender: ROCHE
  Company Number: US-ROCHE-3333040

PATIENT
  Age: 45 Year
  Sex: Female
  Weight: 58.51 kg

DRUGS (5)
  1. RITUXAN [Suspect]
     Active Substance: RITUXIMAB
     Indication: Systemic lupus erythematosus
     Route: 041
     Dates: start: 2021
  2. RITUXAN [Suspect]
     Active Substance: RITUXIMAB
     Indication: Systemic lupus erythematosus
     Dosage: STRENGTH: 500 MG? FREQUENCY TEXT:AT WEEK 1,2,3,4 THEN Q 6 MONTHS
     Route: 042
  3. OMEPRAZOLE [Concomitant]
     Active Substance: OMEPRAZOLE
  4. PREDNISONE [Concomitant]
     Active Substance: PREDNISONE
  5. HYDROXYCHLOROQUINE [Concomitant]
     Active Substance: HYDROXYCHLOROQUINE

REACTIONS (2)
  - Off label use [Unknown]
  - No adverse event [Unknown]
